FAERS Safety Report 5214313-7 (Version None)
Quarter: 2007Q1

REPORT INFORMATION
  Report Type: 
  Country: None (occurrence: None)
  Receive Date: 20070122
  Receipt Date: 20070110
  Transmission Date: 20070707
  Serious: Yes (Other)
  Sender: FDA-Public Use
  Company Number: GB-MERCK-0701GBR00071

PATIENT
  Age: 74 Year
  Sex: Female
  Weight: 72 kg

DRUGS (3)
  1. ZOCOR [Suspect]
     Indication: CARDIAC DISORDER
     Route: 048
     Dates: start: 19980101, end: 20020101
  2. ATENOLOL [Concomitant]
     Route: 048
     Dates: start: 20010101
  3. FLUOXETINE [Concomitant]
     Indication: DEPRESSION
     Route: 048
     Dates: start: 20010101

REACTIONS (1)
  - AMNESIA [None]
